FAERS Safety Report 7029558-3 (Version None)
Quarter: 2010Q4

REPORT INFORMATION
  Report Type: 
  Country: None (occurrence: None)
  Receive Date: 20101001
  Receipt Date: 20100920
  Transmission Date: 20110411
  Serious: Yes (Death, Hospitalization)
  Sender: FDA-Public Use
  Company Number: TR-1183520

PATIENT
  Age: 70 Year
  Sex: Male

DRUGS (4)
  1. FLUORESCITE [Suspect]
     Dosage: INTRAVENOUS BOLUS
     Route: 040
  2. METOPROLOL SUCCINATE [Concomitant]
  3. ASPIRIN [Concomitant]
  4. ALPHAGAN [Concomitant]

REACTIONS (6)
  - CARDIAC FAILURE [None]
  - INFECTION IN AN IMMUNOCOMPROMISED HOST [None]
  - INFUSION SITE EXTRAVASATION [None]
  - PEMPHIGOID [None]
  - SEPSIS [None]
  - URINARY TRACT INFECTION [None]
